FAERS Safety Report 9712320 (Version 1)
Quarter: 2013Q4

REPORT INFORMATION
  Report Type: Spontaneous
  Country: US (occurrence: US)
  Receive Date: 20131126
  Receipt Date: 20131126
  Transmission Date: 20140711
  Serious: No
  Sender: FDA-Public Use
  Company Number: US-BRISTOL-MYERS SQUIBB COMPANY-18867259

PATIENT
  Age: 64 Year
  Sex: Male
  Weight: 97.5 kg

DRUGS (5)
  1. BYDUREON [Suspect]
  2. METFORMIN [Concomitant]
  3. GLYBURIDE [Concomitant]
  4. OMEGA 3 FATTY ACID [Concomitant]
  5. ASPIRIN [Concomitant]

REACTIONS (6)
  - Nausea [Recovering/Resolving]
  - Dyspepsia [Recovering/Resolving]
  - Eructation [Recovering/Resolving]
  - Diarrhoea [Recovering/Resolving]
  - Constipation [Recovering/Resolving]
  - Weight decreased [Recovering/Resolving]
